FAERS Safety Report 22860563 (Version 7)
Quarter: 2023Q4

REPORT INFORMATION
  Report Type: Spontaneous
  Country: US (occurrence: US)
  Receive Date: 20230824
  Receipt Date: 20231113
  Transmission Date: 20240109
  Serious: Yes (Hospitalization)
  Sender: FDA-Public Use
  Company Number: US-PFIZER INC-PV202300144951

PATIENT
  Age: 70 Year
  Sex: Female

DRUGS (1)
  1. IBRANCE [Suspect]
     Active Substance: PALBOCICLIB
     Dosage: 125 MG

REACTIONS (11)
  - Pleural effusion [Unknown]
  - Taste disorder [Unknown]
  - Oral herpes [Unknown]
  - Burning sensation [Unknown]
  - Constipation [Unknown]
  - Oral pain [Unknown]
  - Fatigue [Unknown]
  - Gingival bleeding [Recovering/Resolving]
  - Asthenia [Unknown]
  - Decreased appetite [Recovering/Resolving]
  - Nausea [Recovering/Resolving]
